FAERS Safety Report 14424928 (Version 1)
Quarter: 2018Q1

REPORT INFORMATION
  Report Type: Spontaneous
  Country: IT (occurrence: IT)
  Receive Date: 20180123
  Receipt Date: 20180123
  Transmission Date: 20180509
  Serious: Yes (Other)
  Sender: FDA-Public Use
  Company Number: IT-PFIZER INC-2018026776

PATIENT
  Age: 22 Year
  Sex: Female

DRUGS (3)
  1. LORAZEPAM. [Concomitant]
     Active Substance: LORAZEPAM
     Indication: STATUS EPILEPTICUS
     Dosage: 4 MG, UNK (INTRAVENOUS LORAZEPAM 4 MG WAS PERFORMED TWICE WITH A 15 MINUTE INTERVAL)
     Route: 042
  2. PHENYTOIN SODIUM. [Suspect]
     Active Substance: PHENYTOIN SODIUM
     Indication: STATUS EPILEPTICUS
     Dosage: 1000 MG, UNK (INTRAVENOUS PHENYTOIN 1000 MG WAS GIVEN BY INFUSION OVER A PERIOD OF 20 MINUTES)
     Route: 042
  3. PHENYTOIN SODIUM. [Suspect]
     Active Substance: PHENYTOIN SODIUM
     Dosage: 750 MG, UNK (INFUSION OF 750 MG OF PHENYTOIN WAS SET UP FOR A PERIOD OF 24 HOURS)

REACTIONS (1)
  - Hypoglycaemia [Recovered/Resolved]
